FAERS Safety Report 11500144 (Version 1)
Quarter: 2015Q3

REPORT INFORMATION
  Report Type: Report from Study
  Country: FI (occurrence: FI)
  Receive Date: 20150914
  Receipt Date: 20150914
  Transmission Date: 20151125
  Serious: Yes (Hospitalization)
  Sender: FDA-Public Use
  Company Number: FI-CELGENE-FIN-2015073513

PATIENT
  Age: 64 Year
  Sex: Male
  Weight: 67.1 kg

DRUGS (15)
  1. ABRAXANE [Suspect]
     Active Substance: PACLITAXEL
     Indication: ADENOCARCINOMA PANCREAS
     Route: 041
     Dates: start: 20150612, end: 20150710
  2. NOVORAPID [Concomitant]
     Active Substance: INSULIN ASPART
     Indication: DIABETES MELLITUS
     Dosage: 1200 MILLIGRAM
     Route: 058
     Dates: start: 20150414
  3. PARACETAMOL [Concomitant]
     Active Substance: ACETAMINOPHEN
     Indication: PAIN
     Route: 048
     Dates: start: 20150324
  4. PANCREATIN [Concomitant]
     Active Substance: PANCRELIPASE
     Indication: DIARRHOEA
     Dosage: 5000MG 3 TIMES DAILY AND 25000MG BEFORE BED.
     Route: 048
     Dates: start: 20150324
  5. MICARDIS PLUS [Concomitant]
     Active Substance: HYDROCHLOROTHIAZIDE\TELMISARTAN
     Indication: HYPERTENSION
     Dosage: 80/12.5 MG
     Route: 048
     Dates: start: 1998
  6. KETOPROFEN. [Concomitant]
     Active Substance: KETOPROFEN
     Indication: PYREXIA
     Route: 048
     Dates: start: 20150622
  7. ABRAXANE [Suspect]
     Active Substance: PACLITAXEL
     Route: 041
     Dates: start: 20150713, end: 20150802
  8. ABRAXANE [Suspect]
     Active Substance: PACLITAXEL
     Dosage: 26 IU (INTERNATIONAL UNIT)
     Route: 041
     Dates: start: 20150831
  9. PROTAPHANE [Concomitant]
     Active Substance: INSULIN HUMAN
     Indication: DIABETES MELLITUS
     Dosage: 1000 MILLIGRAM
     Route: 058
     Dates: start: 20150414
  10. AMLODIPINE [Concomitant]
     Active Substance: AMLODIPINE BESYLATE
     Indication: HYPERTENSION
     Route: 048
     Dates: start: 1998
  11. PRIMPERAN [Concomitant]
     Active Substance: METOCLOPRAMIDE HYDROCHLORIDE
     Indication: NAUSEA
     Route: 048
     Dates: start: 20150615
  12. GEMCITABINE [Suspect]
     Active Substance: GEMCITABINE\GEMCITABINE HYDROCHLORIDE
     Route: 041
     Dates: start: 20150713, end: 20150802
  13. GEMCITABINE [Suspect]
     Active Substance: GEMCITABINE\GEMCITABINE HYDROCHLORIDE
     Route: 041
     Dates: start: 20150831
  14. OMEPRAZOLE. [Concomitant]
     Active Substance: OMEPRAZOLE
     Indication: DYSPEPSIA
     Dosage: 1500 MILLIGRAM
     Route: 048
     Dates: start: 20150609
  15. GEMCITABINE [Suspect]
     Active Substance: GEMCITABINE\GEMCITABINE HYDROCHLORIDE
     Indication: PANCREATIC CARCINOMA
     Route: 041
     Dates: start: 20150612, end: 20150802

REACTIONS (5)
  - Clostridium difficile infection [Recovered/Resolved]
  - Sepsis [Recovered/Resolved]
  - Enteritis [Recovered/Resolved]
  - Herpes zoster [Recovered/Resolved]
  - Infection [Recovered/Resolved]

NARRATIVE: CASE EVENT DATE: 20150702
